FAERS Safety Report 9938841 (Version 2)
Quarter: 2014Q1

REPORT INFORMATION
  Report Type: Report from Study
  Country: US (occurrence: US)
  Receive Date: 20140303
  Receipt Date: 20140303
  Transmission Date: 20141002
  Serious: No
  Sender: FDA-Public Use
  Company Number: US-ABBVIE-12P-163-0952017-00

PATIENT
  Age: 68 Year
  Sex: Female

DRUGS (12)
  1. HUMIRA [Suspect]
     Indication: RHEUMATOID ARTHRITIS
     Route: 058
     Dates: start: 201204
  2. SINEMET [Suspect]
     Indication: PRODUCT USED FOR UNKNOWN INDICATION
     Dosage: 25/100 MG
  3. LEXAPRO [Suspect]
     Indication: PRODUCT USED FOR UNKNOWN INDICATION
  4. PROAIR [Concomitant]
     Indication: DYSPNOEA
     Route: 055
  5. FLOVENT [Concomitant]
     Indication: RESPIRATORY TRACT INFLAMMATION
  6. TYLENOL EXTRA STRENGTH [Concomitant]
     Indication: PAIN
  7. CALCIUM NASAL SPRAY [Concomitant]
     Indication: OSTEOPOROSIS
     Dosage: DAILY
  8. LASIX [Concomitant]
     Indication: HYPERTENSION
     Dosage: DAILY
  9. LEVOTHYROXIN [Concomitant]
     Indication: HYPOTHYROIDISM
     Dosage: DAILY
  10. METOPROLOL [Concomitant]
     Indication: HYPERTENSION
  11. ESTROPIPATE [Concomitant]
     Indication: PRODUCT USED FOR UNKNOWN INDICATION
     Dosage: DAILY
  12. KLONOPIN [Concomitant]
     Indication: ANXIETY

REACTIONS (15)
  - Parkinsonism [Unknown]
  - Injection site pruritus [Not Recovered/Not Resolved]
  - Injection site erythema [Not Recovered/Not Resolved]
  - Pain in extremity [Unknown]
  - Pain [Unknown]
  - Muscular weakness [Unknown]
  - Fall [Unknown]
  - Pain [Unknown]
  - Rheumatoid arthritis [Unknown]
  - Rash papular [Unknown]
  - Rash papular [Unknown]
  - Rash papular [Unknown]
  - Injection site erythema [Unknown]
  - Injection site pain [Not Recovered/Not Resolved]
  - Rheumatoid arthritis [Not Recovered/Not Resolved]
